FAERS Safety Report 11838388 (Version 3)
Quarter: 2018Q4

REPORT INFORMATION
  Report Type: Spontaneous
  Country: FR (occurrence: FR)
  Receive Date: 20151215
  Receipt Date: 20181120
  Transmission Date: 20190204
  Serious: Yes (Hospitalization, Other)
  Sender: FDA-Public Use
  Company Number: PHHY2015FR160188

PATIENT
  Age: 80 Year
  Sex: Male

DRUGS (5)
  1. BISOPROLOL [Concomitant]
     Active Substance: BISOPROLOL
     Indication: PRODUCT USED FOR UNKNOWN INDICATION
     Dosage: 2.5 MG, TID
     Route: 065
  2. SIMVASTATIN. [Concomitant]
     Active Substance: SIMVASTATIN
     Indication: PRODUCT USED FOR UNKNOWN INDICATION
     Dosage: 40 MG, UNK
     Route: 065
  3. CANDESARTAN. [Concomitant]
     Active Substance: CANDESARTAN
     Indication: PRODUCT USED FOR UNKNOWN INDICATION
     Dosage: 4 MG, UNK
     Route: 065
  4. OMEPRAZOLE. [Suspect]
     Active Substance: OMEPRAZOLE
     Indication: PRODUCT USED FOR UNKNOWN INDICATION
     Dosage: 20 MG, UNK
     Route: 065
  5. METHOTREXATE. [Suspect]
     Active Substance: METHOTREXATE
     Indication: SQUAMOUS CELL CARCINOMA
     Dosage: 40 MG/M2, QW (AT 40 MG EVERY 15 DAYS)
     Route: 065

REACTIONS (10)
  - Mucosal haemorrhage [Recovered/Resolved]
  - Mucosal inflammation [Recovered/Resolved]
  - Creatinine renal clearance abnormal [Recovered/Resolved]
  - Blood creatinine increased [Recovered/Resolved]
  - Blood creatinine abnormal [Recovered/Resolved]
  - Haemorrhagic disorder [Recovered/Resolved]
  - Pancytopenia [Recovered/Resolved]
  - General physical condition abnormal [Recovered/Resolved]
  - Drug interaction [Recovered/Resolved]
  - Skin lesion [Recovered/Resolved]
